FAERS Safety Report 9403671 (Version 1)
Quarter: 2013Q3

REPORT INFORMATION
  Report Type: Spontaneous
  Country: FR (occurrence: FR)
  Receive Date: 20130717
  Receipt Date: 20130717
  Transmission Date: 20140515
  Serious: Yes (Other)
  Sender: FDA-Public Use
  Company Number: FR-ROCHE-1247811

PATIENT
  Age: 51 Year
  Sex: Male

DRUGS (4)
  1. ROCEPHINE [Suspect]
     Indication: PRODUCT USED FOR UNKNOWN INDICATION
     Route: 042
     Dates: start: 20130503, end: 20130606
  2. TAVANIC [Concomitant]
     Route: 065
     Dates: end: 20130420
  3. ORBENINE [Concomitant]
     Route: 042
     Dates: start: 20130404, end: 20130414
  4. RIFAMPICINE [Concomitant]
     Route: 065
     Dates: end: 20130420

REACTIONS (3)
  - Leukopenia [Recovered/Resolved]
  - Renal failure [Recovered/Resolved]
  - Hepatocellular injury [Recovered/Resolved]
